FAERS Safety Report 4996299-3 (Version None)
Quarter: 2006Q2

REPORT INFORMATION
  Report Type: 
  Country: None (occurrence: None)
  Receive Date: 20060509
  Receipt Date: 20060329
  Transmission Date: 20061013
  Serious: Yes (Hospitalization)
  Sender: FDA-Public Use
  Company Number: FR-BOEHRINGER INGELHEIM PHARMACEUTICALS, INC.-2006-BP-03780YA

PATIENT
  Age: 75 Year
  Sex: Male

DRUGS (3)
  1. OMIX (TAMSULOSIN HYDROCHLORIDE) [Suspect]
     Route: 048
     Dates: end: 20060202
  2. TRANDATE [Concomitant]
     Route: 065
  3. ATACAND [Concomitant]
     Route: 065

REACTIONS (4)
  - DIZZINESS [None]
  - DIZZINESS POSTURAL [None]
  - ORTHOSTATIC HYPOTENSION [None]
  - SYNCOPE [None]
